FAERS Safety Report 19595531 (Version 1)
Quarter: 2021Q3

REPORT INFORMATION
  Report Type: Spontaneous
  Country: IT (occurrence: IT)
  Receive Date: 20210722
  Receipt Date: 20210722
  Transmission Date: 20211014
  Serious: Yes (Congenital Anomaly)
  Sender: FDA-Public Use
  Company Number: NVSC2021IT129838

PATIENT
  Sex: Female
  Weight: 3.36 kg

DRUGS (10)
  1. REMIFENTANIL [Suspect]
     Active Substance: REMIFENTANIL
     Indication: FOETAL EXPOSURE DURING PREGNANCY
     Dosage: MATERNAL DOSE: 0.1 TO 0.3 MCG/KG/MIN
     Route: 064
  2. NITROGLYCERIN. [Suspect]
     Active Substance: NITROGLYCERIN
     Dosage: MATERNAL DOSE: 1 MICROGRAM/KILOGRAM/MIN
     Route: 064
  3. MIDAZOLAM. [Suspect]
     Active Substance: MIDAZOLAM
     Indication: FOETAL EXPOSURE DURING PREGNANCY
     Dosage: MATERNAL DOSE (2 MILLIGRAM)
     Route: 064
  4. METOCLOPRAMIDE. [Suspect]
     Active Substance: METOCLOPRAMIDE
     Indication: FOETAL EXPOSURE DURING PREGNANCY
     Dosage: MATERNAL DOSE (10 MILLIGRAM)
     Route: 064
  5. THIOPENTAL [Suspect]
     Active Substance: THIOPENTAL
     Indication: FOETAL EXPOSURE DURING PREGNANCY
     Dosage: MATERNAL DOSE: 4?6 MG/KG
     Route: 064
  6. PANTOPRAZOLE [Suspect]
     Active Substance: PANTOPRAZOLE
     Indication: FOETAL EXPOSURE DURING PREGNANCY
     Dosage: MATERNAL DOSE (40 MILLIGRAM)
     Route: 064
  7. FENTANYL CITRATE. [Suspect]
     Active Substance: FENTANYL CITRATE
     Indication: FOETAL EXPOSURE DURING PREGNANCY
     Dosage: MATERNAL DOSE (1 MICROGRAM/KILOGRAM)
     Route: 064
  8. SEVOFLURANE. [Suspect]
     Active Substance: SEVOFLURANE
     Indication: FOETAL EXPOSURE DURING PREGNANCY
     Dosage: MATERNAL DOSE: UNK
     Route: 064
  9. ROCURONIUM [Suspect]
     Active Substance: ROCURONIUM BROMIDE
     Indication: FOETAL EXPOSURE DURING PREGNANCY
     Dosage: MATERNAL DOSE (0.6 MILLIGRAM/KILOGRAM)
     Route: 064
  10. NITROGLYCERIN. [Suspect]
     Active Substance: NITROGLYCERIN
     Indication: FOETAL EXPOSURE DURING PREGNANCY
     Dosage: MATERNAL DOSE (100 MILLIGRAM, BID)
     Route: 064

REACTIONS (2)
  - Neck mass [Unknown]
  - Foetal exposure during pregnancy [Unknown]
